FAERS Safety Report 25834875 (Version 1)
Quarter: 2025Q3

REPORT INFORMATION
  Report Type: Report from Study
  Country: CA (occurrence: CA)
  Receive Date: 20250923
  Receipt Date: 20250923
  Transmission Date: 20251020
  Serious: Yes (Other)
  Sender: TEVA
  Company Number: CA-TEVA-VS-3374587

PATIENT
  Sex: Male

DRUGS (13)
  1. EMTRICITABINE\TENOFOVIR DISOPROXIL FUMARATE [Suspect]
     Active Substance: EMTRICITABINE\TENOFOVIR DISOPROXIL FUMARATE
     Indication: HIV infection
     Route: 065
  2. RESTASIS [Concomitant]
     Active Substance: CYCLOSPORINE
     Indication: Dry eye
  3. MARAVIROC [Concomitant]
     Active Substance: MARAVIROC
     Indication: HIV infection
  4. INTELENCE [Concomitant]
     Active Substance: ETRAVIRINE
     Indication: HIV infection
  5. ZOPICLONE [Concomitant]
     Active Substance: ZOPICLONE
     Indication: Sleep disorder
  6. COBICISTAT DARUNAVIR ETHANOLATE [Concomitant]
     Indication: HIV infection
  7. ISENTRESS [Concomitant]
     Active Substance: RALTEGRAVIR POTASSIUM
     Indication: HIV infection
  8. PANTOPRAZOLE [Concomitant]
     Active Substance: PANTOPRAZOLE
     Indication: Gastrointestinal disorder
  9. ANDROGEL [Concomitant]
     Active Substance: TESTOSTERONE
     Indication: Blood testosterone abnormal
  10. LIPITOR [Concomitant]
     Active Substance: ATORVASTATIN CALCIUM
     Indication: Blood cholesterol abnormal
  11. ATIVAN [Concomitant]
     Active Substance: LORAZEPAM
     Indication: Anxiety
  12. CONCERTA [Concomitant]
     Active Substance: METHYLPHENIDATE HYDROCHLORIDE
     Indication: Attention deficit hyperactivity disorder
  13. ACYCLOVIR [Concomitant]
     Active Substance: ACYCLOVIR
     Indication: HIV infection

REACTIONS (1)
  - Osteoporosis [Unknown]
